FAERS Safety Report 8138554-4 (Version None)
Quarter: 2012Q1

REPORT INFORMATION
  Report Type: 
  Country: None (occurrence: None)
  Receive Date: 20120215
  Receipt Date: 20120207
  Transmission Date: 20120608
  Serious: Yes (Hospitalization)
  Sender: FDA-Public Use
  Company Number: NL-ROCHE-785141

PATIENT
  Sex: Female

DRUGS (24)
  1. VINCRISTINE [Suspect]
     Indication: DIFFUSE LARGE B-CELL LYMPHOMA
     Dosage: LAST DOSE PRIOR TO SAE: 24 MAY 2011
     Route: 042
  2. NAPROXEN [Concomitant]
     Indication: PAIN
  3. NAPROXEN [Concomitant]
     Dosage: DOSE:2DD, DATE LAST DOSE PRIOR TO SAE:23 AUG 2011
  4. NYSTATIN [Concomitant]
     Indication: MUCOSAL INFLAMMATION
     Route: 048
     Dates: start: 20110501, end: 20110603
  5. PREDNISONE TAB [Suspect]
     Indication: DIFFUSE LARGE B-CELL LYMPHOMA
     Dosage: LAST DOSE PRIOR TO SAE: 24 MAY 2011.
     Route: 048
  6. CYCLOPHOSPHAMIDE [Suspect]
     Indication: DIFFUSE LARGE B-CELL LYMPHOMA
     Dosage: LAST DOSE PRIOR TO SAE: 24 MAY 2011.
     Route: 042
  7. DOXORUBICIN HCL [Suspect]
     Indication: DIFFUSE LARGE B-CELL LYMPHOMA
     Dosage: LAST DOSE PRIOR TO SAE: 24 MAY 2011
     Route: 042
  8. VALACICLOVIR [Concomitant]
     Indication: PROPHYLAXIS
     Route: 048
  9. ALLOPURINOL [Concomitant]
     Dates: start: 20110510, end: 20110603
  10. ALLOPURINOL [Concomitant]
     Dosage: DOSE:1DD, DATE LAST DOSE PRIOR TO SAE:23 AUG 2011
  11. VALACICLOVIR [Concomitant]
     Dosage: DOSE:2DD, DATE LAST DOSE PRIOR TO SAE:23 AUG 2011
     Route: 048
  12. PANTOPRAZOLE [Concomitant]
     Dosage: DOSE:1DD,DATE LAST DOSE PRIOR TO SAE:23 AUG 2011
  13. MABTHERA [Suspect]
     Dosage: DATE OF LAST DOSE PRIOR TO SAE WAS 06 AUG 2011
     Route: 042
  14. VINCRISTINE [Suspect]
     Dosage: DATE OF LAST DOSE PRIOR TO SAE WAS 06 AUG 2011
     Route: 042
  15. MABTHERA [Suspect]
     Indication: DIFFUSE LARGE B-CELL LYMPHOMA
     Dosage: LAST DOSE PRIOR TO SAE: 24 MAY 2011
     Route: 042
  16. FILGRASTIM [Suspect]
     Indication: DIFFUSE LARGE B-CELL LYMPHOMA
     Route: 058
  17. PREDNISONE TAB [Suspect]
     Dosage: DATE OF LAST DOSE PRIOR TO SAE WAS 20 AUG 2011
     Route: 048
  18. DOXORUBICIN HCL [Suspect]
     Dosage: DATE OF LAST DOSE PRIOR TO SAE WAS 06 AUG 2011
     Route: 042
  19. COTRIM [Concomitant]
     Indication: PROPHYLAXIS
     Dosage: DOSE:1DD, DATE LAST DOSE PRIOR TO SAE:23 AUG 2011
     Route: 048
     Dates: start: 20110510, end: 20110603
  20. LACTULOSE [Concomitant]
     Indication: CONSTIPATION
     Dosage: DOSE:3DD, DATE LAST DOSE PRIOR TO SAE:23 AUG 2011
  21. CYCLOPHOSPHAMIDE [Suspect]
     Dosage: DATE OF LAST DOSE PRIOR TO SAE WAS 06 AUG 2011
     Route: 042
  22. FILGRASTIM [Suspect]
     Dosage: DATE OF LAST DOSE PRIOR TO SAE WAS 07 AUG 2011
     Route: 058
  23. NYSTATIN [Concomitant]
     Route: 048
  24. PANTOPRAZOLE [Concomitant]
     Indication: PEPTIC ULCER
     Dates: start: 20110510, end: 20110603

REACTIONS (1)
  - CONSTIPATION [None]
